FAERS Safety Report 9510931 (Version 1)
Quarter: 2013Q3

REPORT INFORMATION
  Report Type: Spontaneous
  Country: ME (occurrence: ME)
  Receive Date: 20130910
  Receipt Date: 20130910
  Transmission Date: 20140515
  Serious: Yes (Death, Hospitalization)
  Sender: FDA-Public Use
  Company Number: ME-ROCHE-1270902

PATIENT
  Age: 69 Year
  Sex: Male
  Weight: 94 kg

DRUGS (5)
  1. MIRCERA [Suspect]
     Indication: NEPHROGENIC ANAEMIA
     Route: 042
     Dates: start: 20121001, end: 20130808
  2. ALLOPURINOL [Concomitant]
     Indication: HYPERTENSION
     Route: 048
  3. AMLODIPINE [Concomitant]
     Indication: HYPERTENSION
     Route: 048
  4. TORASEMIDE [Concomitant]
     Indication: HYPERTENSION
     Route: 048
  5. SIMVASTATIN [Concomitant]
     Indication: HYPERLIPIDAEMIA
     Route: 048

REACTIONS (1)
  - Acute hepatitis B [Fatal]
